FAERS Safety Report 14417882 (Version 1)
Quarter: 2018Q1

REPORT INFORMATION
  Report Type: Spontaneous
  Country: US (occurrence: US)
  Receive Date: 20180122
  Receipt Date: 20180122
  Transmission Date: 20180509
  Serious: No
  Sender: FDA-Public Use
  Company Number: US-INTERCEPT-PMOCA2017000990

PATIENT

DRUGS (1)
  1. OCALIVA [Suspect]
     Active Substance: OBETICHOLIC ACID
     Dosage: UNK

REACTIONS (4)
  - Pruritus [Unknown]
  - Fatigue [Unknown]
  - Blood bilirubin increased [Unknown]
  - Arthralgia [Unknown]
